FAERS Safety Report 5606046-X (Version None)
Quarter: 2008Q1

REPORT INFORMATION
  Report Type: 
  Country: None (occurrence: None)
  Receive Date: 20080123
  Receipt Date: 20080110
  Transmission Date: 20080703
  Serious: Yes (Other)
  Sender: FDA-Public Use
  Company Number: 2008S1000630

PATIENT
  Age: 33 Year
  Sex: Male

DRUGS (8)
  1. PAROXETINE HCL [Suspect]
     Indication: DRUG USE FOR UNKNOWN INDICATION
  2. CIPRAMIL /00582601/ [Concomitant]
  3. DIAZEPAM [Concomitant]
  4. EFEXOR /01233801/ [Concomitant]
  5. FLUVOXAMINE MALEATE [Concomitant]
  6. LUSTRAL [Concomitant]
  7. PROZAC /00724401/ [Concomitant]
  8. ZISPIN [Concomitant]

REACTIONS (3)
  - AGGRESSION [None]
  - DRUG WITHDRAWAL SYNDROME [None]
  - SUICIDAL IDEATION [None]
